FAERS Safety Report 6918495-8 (Version None)
Quarter: 2010Q3

REPORT INFORMATION
  Report Type: 
  Country: None (occurrence: None)
  Receive Date: 20100811
  Receipt Date: 20100806
  Transmission Date: 20110219
  Serious: Yes (Hospitalization)
  Sender: FDA-Public Use
  Company Number: CH-ASTRAZENECA-2010SE34488

PATIENT
  Age: 85 Year
  Sex: Female

DRUGS (11)
  1. PROPOFOL [Suspect]
     Indication: INDUCTION OF ANAESTHESIA
     Route: 042
     Dates: start: 20100611
  2. REMIFENTANIL [Concomitant]
     Indication: INDUCTION OF ANAESTHESIA
     Dates: start: 20100611
  3. BUPIVACAINE HCL [Concomitant]
     Indication: INDUCTION OF ANAESTHESIA
     Route: 031
  4. XYLOCAINE [Concomitant]
     Indication: INDUCTION OF ANAESTHESIA
  5. SPIRONOLACTONE [Concomitant]
  6. LEVOTHYROXINE [Concomitant]
  7. CARVEDILOL [Concomitant]
  8. OMEPRAZOLE [Concomitant]
  9. SIMVASTATIN [Concomitant]
  10. ZOLPIDEM [Concomitant]
  11. LISINOPRIL [Concomitant]

REACTIONS (5)
  - BLOOD PRESSURE INCREASED [None]
  - CHEST PAIN [None]
  - LOSS OF CONSCIOUSNESS [None]
  - PUPILLARY REFLEX IMPAIRED [None]
  - RESPIRATORY ARREST [None]
